FAERS Safety Report 12518743 (Version 1)
Quarter: 2016Q2

REPORT INFORMATION
  Report Type: Spontaneous
  Country: US (occurrence: US)
  Receive Date: 20160630
  Receipt Date: 20160630
  Transmission Date: 20160815
  Serious: Yes (Other)
  Sender: FDA-Public Use
  Company Number: US-TEVA-671419USA

PATIENT
  Age: 54 Year
  Sex: Female

DRUGS (3)
  1. ZECUITY [Suspect]
     Active Substance: SUMATRIPTAN SUCCINATE
     Route: 062
     Dates: start: 201603, end: 201603
  2. ZECUITY [Suspect]
     Active Substance: SUMATRIPTAN SUCCINATE
     Route: 062
     Dates: start: 201509, end: 201509
  3. ZECUITY [Suspect]
     Active Substance: SUMATRIPTAN SUCCINATE
     Route: 062
     Dates: start: 201602, end: 201602

REACTIONS (5)
  - Application site vesicles [Unknown]
  - Application site pruritus [Unknown]
  - Application site burn [Unknown]
  - Application site discolouration [Recovered/Resolved]
  - Application site erythema [Unknown]

NARRATIVE: CASE EVENT DATE: 201603
